FAERS Safety Report 4638225-2 (Version None)
Quarter: 2005Q2

REPORT INFORMATION
  Report Type: 
  Country: None (occurrence: None)
  Receive Date: 20050415
  Receipt Date: 20050401
  Transmission Date: 20051028
  Serious: Yes (Other)
  Sender: FDA-Public Use
  Company Number: MED000069

PATIENT
  Age: 28 Year
  Sex: Male

DRUGS (1)
  1. LACTATED RINGER'S [Suspect]
     Indication: PREOPERATIVE CARE
     Dosage: 100 CC; QH; INTRAVENOUS
     Route: 042
     Dates: start: 20050401

REACTIONS (4)
  - FACE OEDEMA [None]
  - FLUSHING [None]
  - INFUSION RELATED REACTION [None]
  - RASH PAPULAR [None]
